FAERS Safety Report 7197120-8 (Version None)
Quarter: 2010Q4

REPORT INFORMATION
  Report Type: 
  Country: None (occurrence: None)
  Receive Date: 20101224
  Receipt Date: 20101211
  Transmission Date: 20110411
  Serious: Yes (Other)
  Sender: FDA-Public Use
  Company Number: PHHY2010SI85319

PATIENT
  Age: 82 Year
  Sex: Female

DRUGS (1)
  1. ZOLEDRONIC ACID [Suspect]
     Route: 042

REACTIONS (5)
  - ERYTHEMA OF EYELID [None]
  - EYE PAIN [None]
  - EYELID OEDEMA [None]
  - PAROPHTHALMIA [None]
  - SCLERITIS [None]
